FAERS Safety Report 6436371-4 (Version None)
Quarter: 2009Q4

REPORT INFORMATION
  Report Type: 
  Country: None (occurrence: None)
  Receive Date: 20091111
  Receipt Date: 20091029
  Transmission Date: 20100525
  Serious: Yes (Other)
  Sender: FDA-Public Use
  Company Number: PHHY2009FR21664

PATIENT
  Sex: Male

DRUGS (2)
  1. AREDIA [Suspect]
     Indication: MULTIPLE MYELOMA
     Dosage: 90 MG, QMO
     Route: 042
     Dates: start: 20020601, end: 20070301
  2. CORTANCYL [Concomitant]
     Indication: MULTIPLE MYELOMA
     Dosage: 0.5 DF DAILY

REACTIONS (5)
  - BONE DISORDER [None]
  - BONE OPERATION [None]
  - OSTEONECROSIS [None]
  - PRIMARY SEQUESTRUM [None]
  - TOOTH ABSCESS [None]
